FAERS Safety Report 24393935 (Version 1)
Quarter: 2024Q4

REPORT INFORMATION
  Report Type: Other
  Country: IN (occurrence: IN)
  Receive Date: 20241003
  Receipt Date: 20241003
  Transmission Date: 20250114
  Serious: Yes (Death, Hospitalization)
  Sender: BIONPHARMA
  Company Number: IN-Bion-013970

PATIENT
  Age: 7 Month
  Sex: Male

DRUGS (3)
  1. CLOBAZAM [Suspect]
     Active Substance: CLOBAZAM
     Indication: Muscle spasms
     Dosage: 1 MG/KG/DAY)
  2. VIGABATRIN [Concomitant]
     Active Substance: VIGABATRIN
     Indication: Muscle spasms
  3. CLOBAZAM [Concomitant]
     Active Substance: CLOBAZAM
     Indication: Muscle spasms

REACTIONS (1)
  - Drug ineffective [Fatal]
